FAERS Safety Report 5678972-7 (Version None)
Quarter: 2008Q1

REPORT INFORMATION
  Report Type: 
  Country: None (occurrence: None)
  Receive Date: 20080325
  Receipt Date: 20080324
  Transmission Date: 20080703
  Serious: Yes (Other)
  Sender: FDA-Public Use
  Company Number: A0716997A

PATIENT
  Age: 53 Year
  Sex: Female

DRUGS (2)
  1. COMMIT [Suspect]
     Indication: SMOKING CESSATION THERAPY
     Dosage: 2MG SEE DOSAGE TEXT
     Route: 002
     Dates: start: 20060101
  2. COMMIT [Suspect]
     Indication: SMOKING CESSATION THERAPY
     Dosage: 4MG SEE DOSAGE TEXT
     Route: 002

REACTIONS (2)
  - DEPENDENCE [None]
  - MOOD SWINGS [None]
